FAERS Safety Report 23666547 (Version 2)
Quarter: 2024Q2

REPORT INFORMATION
  Report Type: Report from Study
  Country: GB (occurrence: GB)
  Receive Date: 20240324
  Receipt Date: 20240429
  Transmission Date: 20240715
  Serious: No
  Sender: FDA-Public Use
  Company Number: GB-ROCHE-2956366

PATIENT
  Age: 65 Year
  Sex: Female
  Weight: 63.3 kg

DRUGS (18)
  1. CARBOPLATIN [Suspect]
     Active Substance: CARBOPLATIN
     Indication: Small cell lung cancer metastatic
     Dosage: 560 MG
     Route: 065
     Dates: start: 20210913
  2. ETOPOSIDE [Suspect]
     Active Substance: ETOPOSIDE
     Indication: Small cell lung cancer extensive stage
     Dosage: 164 MG
     Route: 042
     Dates: start: 20210913
  3. ETOPOSIDE [Suspect]
     Active Substance: ETOPOSIDE
     Dosage: 600 MG
     Route: 048
     Dates: start: 20210914
  4. ETOPOSIDE [Suspect]
     Active Substance: ETOPOSIDE
     Dosage: 600 MG
     Route: 048
     Dates: start: 20211013
  5. ATEZOLIZUMAB [Suspect]
     Active Substance: ATEZOLIZUMAB
     Indication: Small cell lung cancer extensive stage
     Dosage: 1200 MG, EVERY 3 WEEKS
     Route: 041
     Dates: start: 20210913
  6. ATEZOLIZUMAB [Suspect]
     Active Substance: ATEZOLIZUMAB
     Dosage: UNK
     Route: 042
  7. ALLOPURINOL [Concomitant]
     Active Substance: ALLOPURINOL
     Indication: Prophylaxis
     Dosage: UNK, 1X/DAY
     Route: 065
     Dates: start: 20210908, end: 20211215
  8. APIXABAN [Concomitant]
     Active Substance: APIXABAN
     Indication: Prophylaxis
     Dosage: UNK, 2X/DAY
     Route: 065
     Dates: start: 20210908, end: 20220720
  9. DEXAMETHASONE [Concomitant]
     Active Substance: DEXAMETHASONE
     Dosage: 6.6 MG
     Route: 065
     Dates: start: 20210913, end: 20210913
  10. DEXAMETHASONE [Concomitant]
     Active Substance: DEXAMETHASONE
     Dosage: 6.6 MG
     Dates: start: 20210914, end: 20210917
  11. DEXAMETHASONE [Concomitant]
     Active Substance: DEXAMETHASONE
     Dosage: 6.6 MG
     Dates: start: 20211016, end: 20211019
  12. METOCLOPRAMIDE [Concomitant]
     Active Substance: METOCLOPRAMIDE
     Dosage: 10 MG
     Route: 065
     Dates: start: 20210913, end: 20210913
  13. ONDANSETRON [Concomitant]
     Active Substance: ONDANSETRON
     Dosage: 8 MG
     Route: 065
     Dates: start: 20210913, end: 20210913
  14. ONDANSETRON [Concomitant]
     Active Substance: ONDANSETRON
     Dosage: 8 MG
     Route: 065
     Dates: start: 20211015, end: 20211015
  15. ONDANSETRON [Concomitant]
     Active Substance: ONDANSETRON
     Dosage: 8 MG
     Route: 065
     Dates: start: 20211105, end: 20211105
  16. ATEZOLIZUMAB [Concomitant]
     Active Substance: ATEZOLIZUMAB
  17. FILGRASTIM [Concomitant]
     Active Substance: FILGRASTIM
     Dosage: 300 UG
     Dates: start: 20210917, end: 20210922
  18. FILGRASTIM [Concomitant]
     Active Substance: FILGRASTIM
     Dosage: 300 UG
     Dates: start: 20211019, end: 20211024

REACTIONS (1)
  - Thrombocytosis [Recovered/Resolved]

NARRATIVE: CASE EVENT DATE: 20211013
